FAERS Safety Report 7782420-0 (Version None)
Quarter: 2011Q3

REPORT INFORMATION
  Report Type: 
  Country: None (occurrence: None)
  Receive Date: 20110928
  Receipt Date: 20110919
  Transmission Date: 20111222
  Serious: Yes (Other)
  Sender: FDA-Public Use
  Company Number: GB-AMGEN-GBRSP2011035765

PATIENT
  Age: 45 Year
  Sex: Male
  Weight: 99 kg

DRUGS (2)
  1. SULFASALAZINE [Concomitant]
     Indication: RHEUMATOID ARTHRITIS
     Dosage: 1 G, 2X/DAY
     Route: 048
  2. ENBREL [Suspect]
     Indication: RHEUMATOID ARTHRITIS
     Dosage: 50 MG, WEEKLY
     Route: 058
     Dates: start: 20070709

REACTIONS (4)
  - HYDRONEPHROSIS [None]
  - HAEMATURIA [None]
  - NEPHROLITHIASIS [None]
  - RENAL COLIC [None]
